FAERS Safety Report 25225718 (Version 1)
Quarter: 2025Q2

REPORT INFORMATION
  Report Type: Spontaneous
  Country: US (occurrence: US)
  Receive Date: 20250422
  Receipt Date: 20250422
  Transmission Date: 20250716
  Serious: No
  Sender: SANOFI AVENTIS
  Company Number: US-SA-2025SA115137

PATIENT
  Age: 81 Year
  Sex: Male

DRUGS (14)
  1. TAXOTERE [Suspect]
     Active Substance: DOCETAXEL
     Indication: Prostate cancer
     Route: 048
  2. RELUGOLIX [Suspect]
     Active Substance: RELUGOLIX
     Indication: Prostate cancer
     Route: 048
  3. RELUGOLIX [Suspect]
     Active Substance: RELUGOLIX
     Indication: Product used for unknown indication
     Dosage: 120 MG, QD
     Route: 048
  4. ASCORBIC ACID [Concomitant]
     Active Substance: ASCORBIC ACID
  5. .BETA.-CAROTENE [Concomitant]
     Active Substance: .BETA.-CAROTENE
  6. CUPRIC OXIDE [Concomitant]
     Active Substance: CUPRIC OXIDE
  7. .ALPHA.-TOCOPHEROL ACETATE [Concomitant]
     Active Substance: .ALPHA.-TOCOPHEROL ACETATE
  8. ZINC OXIDE [Concomitant]
     Active Substance: ZINC OXIDE
  9. LISINOPRIL [Concomitant]
     Active Substance: LISINOPRIL
  10. ATORVASTATIN CALCIUM [Concomitant]
     Active Substance: ATORVASTATIN CALCIUM
  11. AMLODIPINE BESYLATE [Concomitant]
     Active Substance: AMLODIPINE BESYLATE
  12. PANTOPRAZOLE SODIUM [Concomitant]
     Active Substance: PANTOPRAZOLE SODIUM
  13. HYDROXYZINE HYDROCHLORIDE [Concomitant]
     Active Substance: HYDROXYZINE HYDROCHLORIDE
  14. DAROLUTAMIDE [Concomitant]
     Active Substance: DAROLUTAMIDE

REACTIONS (1)
  - Infusion related reaction [Unknown]
